FAERS Safety Report 15478766 (Version 2)
Quarter: 2018Q4

REPORT INFORMATION
  Report Type: Spontaneous
  Country: IN (occurrence: IN)
  Receive Date: 20181009
  Receipt Date: 20181012
  Transmission Date: 20190205
  Serious: Yes (Other)
  Sender: FDA-Public Use
  Company Number: IN-PFIZER INC-2018401743

PATIENT
  Age: 62 Year
  Sex: Male

DRUGS (1)
  1. CAMPTO [Suspect]
     Active Substance: IRINOTECAN
     Indication: COLON CANCER STAGE IV
     Dosage: 200 MG, CYCLIC (WK1-WK9; ILLEGIBLE 2 WEEKS OFF; 9S ? 6WEEKLY)
     Route: 042

REACTIONS (2)
  - Second primary malignancy [Unknown]
  - Gastric cancer [Unknown]
